FAERS Safety Report 13759561 (Version 1)
Quarter: 2017Q3

REPORT INFORMATION
  Report Type: Spontaneous
  Country: US (occurrence: US)
  Receive Date: 20170717
  Receipt Date: 20170717
  Transmission Date: 20171127
  Serious: No
  Sender: FDA-Public Use
  Company Number: US-ENDO PHARMACEUTICALS INC-2017-001367

PATIENT
  Sex: Male

DRUGS (2)
  1. EDEX [Suspect]
     Active Substance: ALPROSTADIL
     Indication: ERECTILE DYSFUNCTION
     Dosage: 80 MCG, UNKNOWN
     Route: 017
  2. EDEX [Suspect]
     Active Substance: ALPROSTADIL
     Dosage: 40 MCG, UNKNOWN
     Route: 017

REACTIONS (1)
  - Drug effect decreased [Unknown]
